FAERS Safety Report 4365514-1 (Version None)
Quarter: 2004Q2

REPORT INFORMATION
  Report Type: 
  Country: None (occurrence: None)
  Receive Date: 20040526
  Receipt Date: 20040405
  Transmission Date: 20050107
  Serious: Yes (Hospitalization)
  Sender: FDA-Public Use
  Company Number: 368183

PATIENT
  Age: 76 Year
  Sex: Male

DRUGS (16)
  1. COREG [Suspect]
     Indication: CARDIAC FAILURE
     Dosage: 12.5MG TWICE PER DAY
     Route: 048
  2. LASIX [Concomitant]
     Indication: DRUG USE FOR UNKNOWN INDICATION
  3. ZOCOR [Concomitant]
     Indication: DRUG USE FOR UNKNOWN INDICATION
  4. ALLOPURINOL [Concomitant]
     Indication: DRUG USE FOR UNKNOWN INDICATION
  5. LANOXIN [Concomitant]
     Indication: DRUG USE FOR UNKNOWN INDICATION
  6. K-DUR 10 [Concomitant]
     Indication: DRUG USE FOR UNKNOWN INDICATION
  7. PLAVIX [Concomitant]
     Indication: DRUG USE FOR UNKNOWN INDICATION
  8. COUMADIN [Concomitant]
     Indication: DRUG USE FOR UNKNOWN INDICATION
  9. SLEEPING MEDICATION [Concomitant]
     Indication: INSOMNIA
  10. FLOMAX [Concomitant]
  11. NIACIN [Concomitant]
  12. CARDURA [Concomitant]
  13. CORDARONE [Concomitant]
  14. PROTONIX [Concomitant]
  15. CAPOTEN [Concomitant]
  16. ECOTRIN [Concomitant]

REACTIONS (7)
  - ARTERIAL OCCLUSIVE DISEASE [None]
  - DYSGEUSIA [None]
  - EATING DISORDER [None]
  - FATIGUE [None]
  - INSOMNIA [None]
  - NAUSEA [None]
  - PACEMAKER COMPLICATION [None]
